FAERS Safety Report 7216490-5 (Version None)
Quarter: 2011Q1

REPORT INFORMATION
  Report Type: 
  Country: None (occurrence: None)
  Receive Date: 20110107
  Receipt Date: 20101229
  Transmission Date: 20110831
  Serious: Yes (Other)
  Sender: FDA-Public Use
  Company Number: PHHY2010US89296

PATIENT
  Sex: Female

DRUGS (4)
  1. OXYCONTIN [Concomitant]
     Dosage: 10 MG
  2. CHEMOTHERAPEUTICS,OTHER [Concomitant]
  3. ZOMETA [Suspect]
  4. OXYCONTIN [Concomitant]
     Dosage: 20 MG

REACTIONS (2)
  - NEOPLASM MALIGNANT [None]
  - SENSORY DISTURBANCE [None]
